FAERS Safety Report 10065244 (Version 2)
Quarter: 2014Q2

REPORT INFORMATION
  Report Type: Spontaneous
  Country: IT (occurrence: IT)
  Receive Date: 20140408
  Receipt Date: 20140603
  Transmission Date: 20141212
  Serious: Yes (Other)
  Sender: FDA-Public Use
  Company Number: IT-PFIZER INC-2014094025

PATIENT
  Age: 47 Year
  Sex: Male
  Weight: 106 kg

DRUGS (5)
  1. VINCRISTINA PFIZER ITALIA [Suspect]
     Indication: NON-HODGKIN^S LYMPHOMA
     Dosage: 2 MG, WEEKLY
     Route: 040
     Dates: start: 20131216, end: 20140220
  2. ADRIBLASTINA [Suspect]
     Indication: NON-HODGKIN^S LYMPHOMA
     Dosage: 100 MG, CYCLIC
     Route: 040
     Dates: start: 20131216, end: 20140220
  3. MABTHERA [Suspect]
     Indication: NON-HODGKIN^S LYMPHOMA
     Dosage: 750 MG, WEEKLY
     Route: 041
     Dates: start: 20131206, end: 20140220
  4. ENDOXAN-BAXTER [Suspect]
     Indication: NON-HODGKIN^S LYMPHOMA
     Dosage: 1500 MG, AS NEEDED
     Route: 041
     Dates: start: 20131216, end: 20140220
  5. DELTACORTENE [Suspect]
     Indication: NON-HODGKIN^S LYMPHOMA
     Dosage: 50 MG/KG, DAILY
     Route: 048
     Dates: start: 20131216, end: 20140220

REACTIONS (1)
  - Febrile neutropenia [Recovered/Resolved]
